FAERS Safety Report 14495644 (Version 2)
Quarter: 2018Q1

REPORT INFORMATION
  Report Type: Report from Study
  Country: None (occurrence: US)
  Receive Date: 20180206
  Receipt Date: 20180227
  Transmission Date: 20180509
  Serious: Yes (Death)
  Sender: FDA-Public Use
  Company Number: US-ABBVIE-18K-163-2248699-00

PATIENT
  Age: 35 Year
  Sex: Male

DRUGS (1)
  1. HUMIRA [Suspect]
     Active Substance: ADALIMUMAB
     Indication: PSORIATIC ARTHROPATHY
     Route: 058
     Dates: start: 20170503, end: 20180112

REACTIONS (3)
  - Pre-existing condition improved [Unknown]
  - Death [Fatal]
  - Therapeutic response unexpected [Unknown]

NARRATIVE: CASE EVENT DATE: 20180112
